FAERS Safety Report 8167693-7 (Version None)
Quarter: 2012Q1

REPORT INFORMATION
  Report Type: 
  Country: None (occurrence: None)
  Receive Date: 20120227
  Receipt Date: 20120220
  Transmission Date: 20120608
  Serious: Yes (Hospitalization)
  Sender: FDA-Public Use
  Company Number: FR-ROCHE-1042208

PATIENT
  Sex: Female

DRUGS (8)
  1. ONDANSETRON [Concomitant]
     Route: 042
  2. CARBOPLATIN [Suspect]
     Indication: BREAST CANCER
     Route: 042
     Dates: start: 20111230, end: 20111230
  3. ZANTAC [Concomitant]
     Route: 042
  4. TAXOL [Suspect]
     Indication: BREAST CANCER
     Route: 042
     Dates: start: 20111230, end: 20111230
  5. POLARAMINE [Concomitant]
     Route: 042
  6. EMEND [Concomitant]
     Route: 048
  7. HERCEPTIN [Suspect]
     Indication: BREAST CANCER
     Route: 042
     Dates: start: 20111230, end: 20111230
  8. METHYLPREDNISOLONE SODIUM SUCCINATE [Concomitant]
     Route: 042

REACTIONS (2)
  - OXYGEN SATURATION DECREASED [None]
  - CHEST PAIN [None]
